FAERS Safety Report 14103940 (Version 2)
Quarter: 2017Q4

REPORT INFORMATION
  Report Type: Spontaneous
  Country: DE (occurrence: DE)
  Receive Date: 20171018
  Receipt Date: 20171024
  Transmission Date: 20180321
  Serious: Yes (Death)
  Sender: FDA-Public Use
  Company Number: DE-BEH-2017084492

PATIENT
  Age: 30 Year
  Sex: Male

DRUGS (8)
  1. FLUDARABINE [Concomitant]
     Active Substance: FLUDARABINE PHOSPHATE
  2. FOSCARNET [Suspect]
     Active Substance: FOSCARNET
     Indication: CORONA VIRUS INFECTION
     Route: 065
  3. CYCLOPHOSPHAMIDE. [Concomitant]
     Active Substance: CYCLOPHOSPHAMIDE
  4. HUMAN IMMUNOGLOBULIN (NC) [Suspect]
     Active Substance: HUMAN IMMUNOGLOBULIN G
     Indication: ENCEPHALITIS VIRAL
  5. ALEMTUZUMAB [Concomitant]
     Active Substance: ALEMTUZUMAB
  6. ANTITHYMOCYTE IMMUNOGLOBULIN [Concomitant]
     Active Substance: THYMOCYTE IMMUNE GLOBULIN NOS
  7. FOSCARNET [Suspect]
     Active Substance: FOSCARNET
     Indication: ENCEPHALITIS VIRAL
  8. HUMAN IMMUNOGLOBULIN (NC) [Suspect]
     Active Substance: HUMAN IMMUNOGLOBULIN G
     Indication: CORONA VIRUS INFECTION
     Route: 042

REACTIONS (1)
  - Drug ineffective for unapproved indication [Fatal]
